FAERS Safety Report 16777356 (Version 1)
Quarter: 2019Q3

REPORT INFORMATION
  Report Type: Spontaneous
  Country: FR (occurrence: FR)
  Receive Date: 20190905
  Receipt Date: 20190905
  Transmission Date: 20191005
  Serious: Yes (Other)
  Sender: FDA-Public Use
  Company Number: FR-FRESENIUS KABI-FK201909669

PATIENT
  Sex: Female

DRUGS (1)
  1. COLISTIMETHATE (MANUFACTURER UNKNOWN) [Suspect]
     Active Substance: COLISTIMETHATE SODIUM
     Indication: ANTIBIOTIC THERAPY
     Dosage: UNKNOWN
     Route: 065

REACTIONS (3)
  - Drug resistance [Recovered/Resolved]
  - Acinetobacter infection [Recovered/Resolved]
  - Septic shock [Recovered/Resolved]
